FAERS Safety Report 12706638 (Version 1)
Quarter: 2016Q3

REPORT INFORMATION
  Report Type: Report from Study
  Country: US (occurrence: US)
  Receive Date: 20160901
  Receipt Date: 20160901
  Transmission Date: 20161109
  Serious: Yes (Other)
  Sender: FDA-Public Use
  Company Number: US-JNJFOC-20160703633

PATIENT
  Sex: Female

DRUGS (1)
  1. IMBRUVICA [Suspect]
     Active Substance: IBRUTINIB
     Indication: WALDENSTROM^S MACROGLOBULINAEMIA
     Route: 048
     Dates: start: 20160211

REACTIONS (5)
  - Thrombosis [Unknown]
  - Joint swelling [Unknown]
  - Balance disorder [Unknown]
  - Visual acuity reduced [Unknown]
  - Dizziness [Unknown]

NARRATIVE: CASE EVENT DATE: 2016
